FAERS Safety Report 4996317-2 (Version None)
Quarter: 2006Q2

REPORT INFORMATION
  Report Type: 
  Country: None (occurrence: None)
  Receive Date: 20060505
  Receipt Date: 20060427
  Transmission Date: 20061013
  Serious: No
  Sender: FDA-Public Use
  Company Number: 2006-140922-NL

PATIENT
  Sex: Male

DRUGS (1)
  1. MIRTAZAPINE [Suspect]
     Dosage: DF ORAL
     Route: 048

REACTIONS (5)
  - AKATHISIA [None]
  - DRUG WITHDRAWAL SYNDROME [None]
  - MANIA [None]
  - SEROTONIN SYNDROME [None]
  - SUICIDAL IDEATION [None]
